FAERS Safety Report 8109579-X (Version None)
Quarter: 2012Q1

REPORT INFORMATION
  Report Type: 
  Country: None (occurrence: None)
  Receive Date: 20120202
  Receipt Date: 20120129
  Transmission Date: 20120608
  Serious: Yes (Other)
  Sender: FDA-Public Use
  Company Number: US-PFIZER INC-2008015049

PATIENT
  Sex: Female

DRUGS (7)
  1. CELEBREX [Concomitant]
     Indication: MOVEMENT DISORDER
     Dosage: UNK
  2. SYNTHROID [Concomitant]
  3. XALATAN [Suspect]
     Indication: PROPHYLAXIS
  4. XALATAN [Suspect]
     Indication: GLAUCOMA
     Dosage: 1 GTT IN EACH EYE, 1X/DAY
     Route: 047
  5. NEXIUM [Concomitant]
  6. BRIMONIDINE TARTRATE [Concomitant]
     Dosage: UNK
  7. AZOPT [Concomitant]
     Dosage: UNK

REACTIONS (4)
  - DRY EYE [None]
  - EYE OPERATION [None]
  - INFECTION [None]
  - EYE IRRITATION [None]
